FAERS Safety Report 7769808-9 (Version None)
Quarter: 2011Q3

REPORT INFORMATION
  Report Type: 
  Country: None (occurrence: None)
  Receive Date: 20110922
  Receipt Date: 20100727
  Transmission Date: 20111222
  Serious: No
  Sender: FDA-Public Use
  Company Number: US-ASTRAZENECA-2010SE35165

PATIENT
  Age: 40 Year
  Sex: Male

DRUGS (2)
  1. SEROQUEL XR [Suspect]
     Indication: MAJOR DEPRESSION
     Dosage: AT NIGHT
     Route: 048
     Dates: start: 20100323, end: 20100329
  2. TYLENOL-500 [Concomitant]

REACTIONS (5)
  - FEELING ABNORMAL [None]
  - DRUG DOSE OMISSION [None]
  - INSOMNIA [None]
  - VERBAL ABUSE [None]
  - SOMNOLENCE [None]
